FAERS Safety Report 26027028 (Version 1)
Quarter: 2025Q4

REPORT INFORMATION
  Report Type: Spontaneous
  Country: CN (occurrence: CN)
  Receive Date: 20251111
  Receipt Date: 20251111
  Transmission Date: 20260118
  Serious: Yes (Other)
  Sender: PFIZER
  Company Number: CN-PFIZER INC-PV202500132043

PATIENT
  Age: 27 Year
  Sex: Female
  Weight: 60.7 kg

DRUGS (4)
  1. CARBOPROST TROMETHAMINE [Suspect]
     Active Substance: CARBOPROST TROMETHAMINE
     Indication: Uterine hypotonus
     Dosage: 250 UG, 1X/DAY
     Route: 030
     Dates: start: 20251105, end: 20251105
  2. CARBOPROST TROMETHAMINE [Suspect]
     Active Substance: CARBOPROST TROMETHAMINE
     Indication: Haemorrhage prophylaxis
  3. MISOPROSTOL [Concomitant]
     Active Substance: MISOPROSTOL
     Indication: Uterine hypotonus
     Dosage: 0.4 MG, 1X/DAY
     Route: 048
     Dates: start: 20251105, end: 20251105
  4. MISOPROSTOL [Concomitant]
     Active Substance: MISOPROSTOL
     Indication: Haemorrhage prophylaxis

REACTIONS (6)
  - Nausea [Recovered/Resolved]
  - Retching [Recovered/Resolved]
  - Dizziness [Recovered/Resolved]
  - Cold sweat [Recovered/Resolved]
  - Abdominal distension [Recovered/Resolved]
  - Off label use [Unknown]

NARRATIVE: CASE EVENT DATE: 20251105
